FAERS Safety Report 21572599 (Version 2)
Quarter: 2022Q4

REPORT INFORMATION
  Report Type: Report from Study
  Country: BR (occurrence: BR)
  Receive Date: 20221109
  Receipt Date: 20221206
  Transmission Date: 20230113
  Serious: Yes (Other)
  Sender: FDA-Public Use
  Company Number: BR-JNJFOC-20221102347

PATIENT
  Age: 29 Year
  Sex: Female

DRUGS (2)
  1. REMICADE [Suspect]
     Active Substance: INFLIXIMAB
     Indication: Crohn^s disease
     Route: 041
     Dates: start: 2015, end: 2018
  2. REMICADE [Suspect]
     Active Substance: INFLIXIMAB
     Dosage: 3VIALS
     Route: 041
     Dates: start: 202108, end: 202203

REACTIONS (6)
  - Kidney infection [Recovered/Resolved]
  - Nephrolithiasis [Recovered/Resolved]
  - Crohn^s disease [Unknown]
  - Drug ineffective [Unknown]
  - COVID-19 [Recovered/Resolved]
  - Off label use [Unknown]

NARRATIVE: CASE EVENT DATE: 20220401
